FAERS Safety Report 23445890 (Version 3)
Quarter: 2024Q1

REPORT INFORMATION
  Report Type: Spontaneous
  Country: JP (occurrence: JP)
  Receive Date: 20240126
  Receipt Date: 20240220
  Transmission Date: 20240410
  Serious: Yes (Other)
  Sender: FDA-Public Use
  Company Number: JP-BEH-2024167750

PATIENT
  Age: 27 Year
  Sex: Male
  Weight: 53 kg

DRUGS (8)
  1. IDELVION [Suspect]
     Active Substance: COAGULATION FACTOR IX RECOMBINANT HUMAN
     Indication: Haemorrhage prophylaxis
     Dosage: 3500 INTERNATIONAL UNIT, SINGLE
     Route: 042
     Dates: start: 20231226, end: 20231226
  2. IDELVION [Suspect]
     Active Substance: COAGULATION FACTOR IX RECOMBINANT HUMAN
     Indication: Haemorrhage prophylaxis
     Dosage: 3500 INTERNATIONAL UNIT, SINGLE
     Route: 042
     Dates: start: 20231226, end: 20231226
  3. IDELVION [Suspect]
     Active Substance: COAGULATION FACTOR IX RECOMBINANT HUMAN
     Indication: Haemostasis
     Dosage: 3500 INTERNATIONAL UNIT, SINGLE
     Route: 042
     Dates: start: 20231115, end: 20231115
  4. IDELVION [Suspect]
     Active Substance: COAGULATION FACTOR IX RECOMBINANT HUMAN
     Indication: Haemostasis
     Dosage: 3500 INTERNATIONAL UNIT, SINGLE
     Route: 042
     Dates: start: 20231115, end: 20231115
  5. IDELVION [Suspect]
     Active Substance: COAGULATION FACTOR IX RECOMBINANT HUMAN
     Indication: Factor IX deficiency
     Dosage: 3500 INTERNATIONAL UNIT, QOW
     Route: 042
     Dates: start: 20180314, end: 20240104
  6. IDELVION [Suspect]
     Active Substance: COAGULATION FACTOR IX RECOMBINANT HUMAN
     Indication: Factor IX deficiency
     Dosage: 3500 INTERNATIONAL UNIT, QOW
     Route: 042
     Dates: start: 20180314, end: 20240104
  7. IDELVION [Suspect]
     Active Substance: COAGULATION FACTOR IX RECOMBINANT HUMAN
     Dosage: 3500 INTERNATIONAL UNIT, QW
     Route: 042
     Dates: start: 20240105
  8. IDELVION [Suspect]
     Active Substance: COAGULATION FACTOR IX RECOMBINANT HUMAN
     Dosage: 3500 INTERNATIONAL UNIT, QW
     Route: 042
     Dates: start: 20240105

REACTIONS (7)
  - Muscle haemorrhage [Not Recovered/Not Resolved]
  - Swelling [Not Recovered/Not Resolved]
  - Product preparation issue [Not Recovered/Not Resolved]
  - Arthralgia [Recovered/Resolved]
  - Muscle swelling [Recovered/Resolved]
  - Haemarthrosis [Recovering/Resolving]
  - Haemorrhage [Recovering/Resolving]

NARRATIVE: CASE EVENT DATE: 20231115
